FAERS Safety Report 6291847-8 (Version None)
Quarter: 2009Q3

REPORT INFORMATION
  Report Type: 
  Country: None (occurrence: None)
  Receive Date: 20090730
  Receipt Date: 20090723
  Transmission Date: 20100115
  Serious: Yes (Hospitalization, Disabling)
  Sender: FDA-Public Use
  Company Number: US-MERCK-0902USA04514

PATIENT
  Age: 51 Year
  Sex: Female
  Weight: 97 kg

DRUGS (15)
  1. FOSAMAX [Suspect]
     Indication: OSTEOPOROSIS
     Route: 048
     Dates: start: 19960101, end: 20000101
  2. FOSAMAX [Suspect]
     Route: 048
     Dates: start: 20000101, end: 20070301
  3. FOSAMAX [Suspect]
     Indication: OSTEOPENIA
     Route: 048
     Dates: start: 19960101, end: 20000101
  4. FOSAMAX [Suspect]
     Route: 048
     Dates: start: 20000101, end: 20070301
  5. SYNTHROID [Concomitant]
     Indication: HYPOTHYROIDISM
     Route: 065
     Dates: start: 19850101
  6. CYTOMEL [Concomitant]
     Route: 065
     Dates: end: 20070101
  7. LIPITOR [Concomitant]
     Route: 065
     Dates: end: 20060101
  8. AMBIEN [Concomitant]
     Route: 065
  9. WELLBUTRIN [Concomitant]
     Route: 065
  10. ZOLOFT [Concomitant]
     Route: 065
  11. ZYPREXA [Concomitant]
     Route: 065
  12. REMERON [Concomitant]
     Route: 065
  13. KLONOPIN [Concomitant]
     Indication: ANXIETY
     Route: 065
     Dates: start: 19980101
  14. CALTRATE + D [Concomitant]
     Route: 065
  15. VIVELLE [Concomitant]
     Route: 065

REACTIONS (13)
  - ANXIETY [None]
  - ARTERIOSPASM CORONARY [None]
  - DEPRESSION [None]
  - FALL [None]
  - FEMUR FRACTURE [None]
  - GLUCOSE TOLERANCE IMPAIRED [None]
  - HYPOPHOSPHATAEMIA [None]
  - INFECTION [None]
  - LOW TURNOVER OSTEOPATHY [None]
  - OSTEOPOROSIS [None]
  - ROAD TRAFFIC ACCIDENT [None]
  - STRESS FRACTURE [None]
  - WEIGHT INCREASED [None]
